FAERS Safety Report 21593146 (Version 2)
Quarter: 2022Q4

REPORT INFORMATION
  Report Type: Report from Study
  Country: CA (occurrence: CA)
  Receive Date: 20221114
  Receipt Date: 20221117
  Transmission Date: 20230112
  Serious: Yes (Hospitalization, Other)
  Sender: FDA-Public Use
  Company Number: CA-ABBVIE-4198861

PATIENT
  Sex: Male

DRUGS (2)
  1. HUMIRA [Suspect]
     Active Substance: ADALIMUMAB
     Indication: Crohn^s disease
     Route: 058
     Dates: start: 20160721, end: 20211218
  2. HUMIRA [Suspect]
     Active Substance: ADALIMUMAB
     Route: 058
     Dates: start: 20220815, end: 20221108

REACTIONS (7)
  - Stoma closure [Unknown]
  - Sepsis [Unknown]
  - Stent placement [Unknown]
  - Unevaluable event [Unknown]
  - Urinary tract procedural complication [Unknown]
  - Drug eruption [Unknown]
  - Ear infection [Unknown]
